FAERS Safety Report 17855694 (Version 1)
Quarter: 2020Q2

REPORT INFORMATION
  Report Type: Spontaneous
  Country: GB (occurrence: GB)
  Receive Date: 20200603
  Receipt Date: 20200603
  Transmission Date: 20200714
  Serious: Yes (Other)
  Sender: FDA-Public Use
  Company Number: GB-TEVA-2020-GB-1243387

PATIENT
  Age: 72 Year
  Sex: Male
  Weight: 71 kg

DRUGS (22)
  1. FEXOFENADINE [Suspect]
     Active Substance: FEXOFENADINE HYDROCHLORIDE
     Dosage: 720 MILLIGRAM DAILY;
     Dates: start: 20200505
  2. AMLODIPINE [Concomitant]
     Active Substance: AMLODIPINE BESYLATE
     Dosage: 1 DOSAGE FORMS
     Dates: start: 20200414
  3. PIROXICAM. [Concomitant]
     Active Substance: PIROXICAM
     Dosage: APPLY BD
     Dates: start: 20200505
  4. LOSARTAN. [Concomitant]
     Active Substance: LOSARTAN
     Dosage: 1 DOSAGE FORMS
     Dates: start: 20180119
  5. ATORVASTATIN [Concomitant]
     Active Substance: ATORVASTATIN
     Dosage: 1 DOSAGE FORMS
     Dates: start: 20180119
  6. QUININE [Concomitant]
     Active Substance: QUININE
     Dosage: 1 DOSAGE FORMS
     Dates: start: 20180119
  7. IMODIUM [Concomitant]
     Active Substance: LOPERAMIDE HYDROCHLORIDE
     Dosage: USE AS DIRECTED
     Dates: start: 20180119
  8. BENDROFLUMETHIAZIDE [Concomitant]
     Active Substance: BENDROFLUMETHIAZIDE
     Dosage: 1 DOSAGE FORMS DAILY; IN THE MORNING
     Dates: start: 20191217
  9. BISOPROLOL [Concomitant]
     Active Substance: BISOPROLOL
     Dosage: 1 DOSAGE FORMS
     Dates: start: 20180119
  10. SPIRONOLACTONE. [Concomitant]
     Active Substance: SPIRONOLACTONE
     Dosage: OD
     Dates: start: 20200428, end: 20200429
  11. APIXABAN [Concomitant]
     Active Substance: APIXABAN
     Dosage: BD
     Dates: start: 20191112
  12. CO-DYDRAMOL [Concomitant]
     Active Substance: ACETAMINOPHEN\DIHYDROCODEINE
     Dosage: TAKE ONE OR TWO TABLETS, FOUR TIMES DAILY PRN
     Dates: start: 20191217
  13. CHLORPHENAMINE [Concomitant]
     Active Substance: CHLORPHENIRAMINE MALEATE
     Dosage: TAKE ONE EVERY 4-6 HRS AS DIRECTED
     Dates: start: 20200513
  14. MEBEVERINE HYDROCHLORIDE [Concomitant]
     Active Substance: MEBEVERINE HYDROCHLORIDE
     Dosage: 3 DOSAGE FORMS
     Dates: start: 20200505
  15. FERROUS FUMARATE [Concomitant]
     Active Substance: FERROUS FUMARATE
     Dosage: BD
     Dates: start: 20200505
  16. FLEXITOL HEEL BALM [Concomitant]
     Dosage: BD
     Dates: start: 20200414, end: 20200512
  17. FOLIC ACID. [Concomitant]
     Active Substance: FOLIC ACID
     Dosage: 1 DOSAGE FORMS
     Dates: start: 20180119
  18. NAPROXEN. [Concomitant]
     Active Substance: NAPROXEN
     Dosage: UP TO FOUR TIMES A DAY. TAKE WITH OR JUST AFTER FOOD (1 DOSAGE FORMS)
     Dates: start: 20200505, end: 20200512
  19. E45 [Concomitant]
     Active Substance: LANOLIN\LIGHT MINERAL OIL\PARAFFIN
     Dosage: APPLY, 2 DOSAGE FORMS
     Dates: start: 20200505, end: 20200506
  20. DOXAZOSIN [Concomitant]
     Active Substance: DOXAZOSIN MESYLATE
     Dosage: 1 DOSAGE FORMS
     Dates: start: 20180119, end: 20200414
  21. SILDENAFIL. [Concomitant]
     Active Substance: SILDENAFIL
     Dosage: USE AS DIRECTED
     Dates: start: 20200505
  22. RANITIDINE. [Concomitant]
     Active Substance: RANITIDINE
     Dosage: 2 DOSAGE FORMS
     Dates: start: 20180119

REACTIONS (1)
  - Rash pruritic [Recovering/Resolving]

NARRATIVE: CASE EVENT DATE: 20200513
